FAERS Safety Report 13538566 (Version 1)
Quarter: 2017Q2

REPORT INFORMATION
  Report Type: Spontaneous
  Country: US (occurrence: US)
  Receive Date: 20170512
  Receipt Date: 20170512
  Transmission Date: 20170830
  Serious: Yes (Hospitalization, Other)
  Sender: FDA-Public Use
  Company Number: US-APOTEX-2017AP011734

PATIENT
  Age: 17 Year
  Sex: Male

DRUGS (3)
  1. METOPROLOL. [Suspect]
     Active Substance: METOPROLOL
     Indication: PRODUCT USED FOR UNKNOWN INDICATION
     Dosage: UNK
     Route: 048
  2. CAFFEINE. [Suspect]
     Active Substance: CAFFEINE
     Indication: PRODUCT USED FOR UNKNOWN INDICATION
     Dosage: UNK
     Route: 048
  3. AMLODIPINE BESYLATE. [Suspect]
     Active Substance: AMLODIPINE BESYLATE
     Indication: PRODUCT USED FOR UNKNOWN INDICATION
     Dosage: UNK
     Route: 048

REACTIONS (11)
  - Suicide attempt [Unknown]
  - Atrioventricular block first degree [Unknown]
  - Gait disturbance [Unknown]
  - Lung disorder [Unknown]
  - Cardiac arrest [Recovered/Resolved]
  - Mental status changes [Recovered/Resolved]
  - Circulatory collapse [Unknown]
  - Lethargy [Recovered/Resolved]
  - Electrocardiogram QT prolonged [Unknown]
  - Overdose [Unknown]
  - Dysarthria [Unknown]
